FAERS Safety Report 6541485-4 (Version None)
Quarter: 2010Q1

REPORT INFORMATION
  Report Type: 
  Country: None (occurrence: None)
  Receive Date: 20100119
  Receipt Date: 20100108
  Transmission Date: 20100710
  Serious: Yes (Other)
  Sender: FDA-Public Use
  Company Number: US-RB-000886-10

PATIENT
  Age: 41 Year
  Sex: Male

DRUGS (1)
  1. DELSYM ADULT COUGH SYRUP [Suspect]
     Route: 048
     Dates: start: 20100105

REACTIONS (4)
  - DIZZINESS [None]
  - PHARYNGEAL OEDEMA [None]
  - SPEECH DISORDER [None]
  - SWOLLEN TONGUE [None]
